FAERS Safety Report 11833592 (Version 2)
Quarter: 2016Q3

REPORT INFORMATION
  Report Type: Spontaneous
  Country: US (occurrence: US)
  Receive Date: 20151214
  Receipt Date: 20160712
  Transmission Date: 20161109
  Serious: Yes (Disabling, Other)
  Sender: FDA-Public Use
  Company Number: US-TEVA-617516USA

PATIENT
  Age: 55 Year
  Sex: Female

DRUGS (3)
  1. ALENDRONIC ACID [Concomitant]
     Active Substance: ALENDRONIC ACID
     Indication: OSTEOPOROSIS
  2. LEVOFLOXACIN. [Suspect]
     Active Substance: LEVOFLOXACIN
     Indication: URINARY TRACT INFECTION
     Dosage: 500 MG/DAY FOR 10 DAYS (3 COURSES)
     Route: 065
  3. LEVOFLOXACIN. [Suspect]
     Active Substance: LEVOFLOXACIN
     Indication: SINUSITIS
     Dosage: 750 MG FOR 5 DAYS
     Route: 065

REACTIONS (22)
  - Visual impairment [Unknown]
  - Cardiovascular disorder [Unknown]
  - Alopecia [Unknown]
  - Myalgia [Unknown]
  - Cognitive disorder [Unknown]
  - Sleep disorder [Unknown]
  - Neuropathy peripheral [Unknown]
  - Affective disorder [Unknown]
  - Fatigue [Unknown]
  - Amnesia [Unknown]
  - Muscular weakness [Unknown]
  - Headache [Unknown]
  - Mental disorder [Unknown]
  - Tendon disorder [Unknown]
  - Hypoacusis [Unknown]
  - Pain [Unknown]
  - Confusional state [Unknown]
  - Toxicity to various agents [Unknown]
  - Sensory disturbance [Unknown]
  - Arthralgia [Unknown]
  - Anxiety [Unknown]
  - Tinnitus [Unknown]
